FAERS Safety Report 20228140 (Version 2)
Quarter: 2022Q1

REPORT INFORMATION
  Report Type: Report from Study
  Country: US (occurrence: None)
  Receive Date: 20211224
  Receipt Date: 20220119
  Transmission Date: 20220423
  Serious: Yes (Hospitalization, Other)
  Sender: FDA-Public Use
  Company Number: 2021A795475

PATIENT
  Age: 53 Year
  Sex: Male
  Weight: 86 kg

DRUGS (20)
  1. AZD-4573 [Suspect]
     Active Substance: AZD-4573
     Indication: Refractory cancer
     Dosage: 6.0MG ONCE/SINGLE ADMINISTRATION
     Route: 042
     Dates: start: 20211007, end: 20211007
  2. AZD-4573 [Suspect]
     Active Substance: AZD-4573
     Indication: Refractory cancer
     Dosage: 6.0MG ONCE/SINGLE ADMINISTRATION
     Route: 042
     Dates: start: 20211021, end: 20211021
  3. AZD-4573 [Suspect]
     Active Substance: AZD-4573
     Indication: Refractory cancer
     Dosage: 9.0MG ONCE/SINGLE ADMINISTRATION
     Route: 042
     Dates: start: 20211027, end: 20211027
  4. AZD-4573 [Suspect]
     Active Substance: AZD-4573
     Indication: Refractory cancer
     Dosage: 12.0MG ONCE/SINGLE ADMINISTRATION
     Route: 042
     Dates: start: 20211102, end: 20211102
  5. AZD-4573 [Suspect]
     Active Substance: AZD-4573
     Indication: Refractory cancer
     Dosage: 12.0MG ONCE/SINGLE ADMINISTRATION
     Route: 042
     Dates: start: 20211118, end: 20211216
  6. AZD-4573 [Suspect]
     Active Substance: AZD-4573
     Indication: Refractory cancer
     Dosage: 12.0MG ONCE/SINGLE ADMINISTRATION
     Route: 042
     Dates: start: 20211222, end: 20211222
  7. ACALABRUTINIB [Suspect]
     Active Substance: ACALABRUTINIB
     Indication: Refractory cancer
     Route: 048
     Dates: start: 20211007, end: 20211008
  8. ACALABRUTINIB [Suspect]
     Active Substance: ACALABRUTINIB
     Indication: Refractory cancer
     Route: 048
     Dates: start: 20211011, end: 20211027
  9. ACALABRUTINIB [Suspect]
     Active Substance: ACALABRUTINIB
     Indication: Refractory cancer
     Route: 048
     Dates: start: 20211102, end: 20211109
  10. ACALABRUTINIB [Suspect]
     Active Substance: ACALABRUTINIB
     Indication: Refractory cancer
     Route: 048
     Dates: start: 20211118, end: 20211228
  11. RIBAVIRIN [Concomitant]
     Active Substance: RIBAVIRIN
     Indication: Respiratory syncytial virus infection
     Route: 048
     Dates: start: 20211014, end: 20211120
  12. ALLOPURINOL [Concomitant]
     Active Substance: ALLOPURINOL
     Indication: Prophylaxis
     Route: 048
     Dates: start: 20211003, end: 20211110
  13. ALLOPURINOL [Concomitant]
     Active Substance: ALLOPURINOL
     Indication: Prophylaxis
     Route: 048
     Dates: start: 20211111
  14. ASPIRIN [Concomitant]
     Active Substance: ASPIRIN
     Indication: Prophylaxis
     Route: 048
     Dates: start: 2007
  15. ATROPINE [Concomitant]
     Active Substance: ATROPINE
     Indication: Premedication
     Dosage: 0.5 MG PRIOR TO AZD INFUSION
     Route: 042
     Dates: start: 20211007
  16. CETIRIZINE [Concomitant]
     Active Substance: CETIRIZINE HYDROCHLORIDE
     Indication: Seasonal allergy
     Dosage: 10.0MG AS REQUIRED
     Route: 048
  17. GABAPENTIN [Concomitant]
     Active Substance: GABAPENTIN
     Indication: Peripheral sensory neuropathy
     Route: 048
     Dates: start: 20201214
  18. DEXAMETHASONE [Concomitant]
     Active Substance: DEXAMETHASONE
     Indication: Premedication
     Dosage: 8 MG PRIOR TO AZD INFUSION
     Route: 042
     Dates: start: 20211007
  19. ONDANSETRON [Concomitant]
     Active Substance: ONDANSETRON
     Indication: Premedication
     Dosage: 8 MG PRIOR TO AZD INFUSION
     Route: 048
     Dates: start: 20211027
  20. ONDANSETRON [Concomitant]
     Active Substance: ONDANSETRON
     Indication: Premedication
     Dosage: 8.0MG ONCE/SINGLE ADMINISTRATION
     Route: 042
     Dates: start: 20211028, end: 20211028

REACTIONS (1)
  - Drug-induced liver injury [Recovered/Resolved]

NARRATIVE: CASE EVENT DATE: 20211028
